FAERS Safety Report 9385193 (Version 2)
Quarter: 2013Q4

REPORT INFORMATION
  Report Type: Spontaneous
  Country: US (occurrence: None)
  Receive Date: 20130628
  Receipt Date: 20131120
  Transmission Date: 20140711
  Serious: Yes (Other)
  Sender: FDA-Public Use
  Company Number: 2013P1009207

PATIENT
  Age: 69 Year
  Sex: Female

DRUGS (2)
  1. INFUMORPH [Suspect]
     Indication: PAIN
     Route: 037
  2. INFUMORPH [Suspect]
     Indication: BACK PAIN
     Route: 037

REACTIONS (9)
  - Surgery [None]
  - Drug dependence [None]
  - Treatment noncompliance [None]
  - Drug withdrawal syndrome [None]
  - Feeling of body temperature change [None]
  - Dyskinesia [None]
  - Nausea [None]
  - Vomiting [None]
  - Pain [None]
